FAERS Safety Report 12185998 (Version 1)
Quarter: 2016Q1

REPORT INFORMATION
  Report Type: Report from Study
  Country: US (occurrence: US)
  Receive Date: 20160317
  Receipt Date: 20160317
  Transmission Date: 20160526
  Serious: Yes (Hospitalization, Other)
  Sender: FDA-Public Use
  Company Number: US-AMGEN-USASL2016032493

PATIENT
  Age: 58 Year
  Sex: Female

DRUGS (1)
  1. ENBREL [Suspect]
     Active Substance: ETANERCEPT
     Indication: PSORIATIC ARTHROPATHY
     Dosage: UNK UNK, QWK
     Route: 065
     Dates: start: 20151026

REACTIONS (5)
  - Oxygen saturation abnormal [Unknown]
  - Rhinorrhoea [Unknown]
  - Confusional state [Unknown]
  - Pneumonia [Unknown]
  - Oral herpes [Unknown]

NARRATIVE: CASE EVENT DATE: 201603
